FAERS Safety Report 18269470 (Version 1)
Quarter: 2020Q3

REPORT INFORMATION
  Report Type: Spontaneous
  Country: FR (occurrence: FR)
  Receive Date: 20200915
  Receipt Date: 20200915
  Transmission Date: 20201103
  Serious: Yes (Other)
  Sender: FDA-Public Use
  Company Number: FR-JAZZ-2020-FR-011135

PATIENT
  Age: 33 Year
  Sex: Female
  Weight: 81 kg

DRUGS (5)
  1. KIDROLASE [Suspect]
     Active Substance: ASPARAGINASE
     Indication: ACUTE LYMPHOCYTIC LEUKAEMIA
     Dosage: GRAALL 2014 PROTOCOL, (6,000IU/[MM?]) I.E 11,000 U
     Route: 065
     Dates: start: 20200406
  2. DAUNORUBICIN [Suspect]
     Active Substance: DAUNORUBICIN
     Indication: ACUTE LYMPHOCYTIC LEUKAEMIA
     Dosage: GRAALL 2014 PROTOCOL (50 MG/[MM?] I.E. 93 MG)
     Dates: start: 20200406
  3. DAUNORUBICIN [Suspect]
     Active Substance: DAUNORUBICIN
     Dosage: GRAALL 2014 PROTOCOL (30 MG/[MM?] I.E. 56 MG)
     Dates: start: 20200406
  4. VINCRISTINE [Suspect]
     Active Substance: VINCRISTINE
     Indication: ACUTE LYMPHOCYTIC LEUKAEMIA
     Dosage: GRAALL 2014 PROTOCOL (50 MG/[MM?] I.E. 2 MG)
     Dates: start: 20200406
  5. CYCLOPHOSPHAMIDE. [Suspect]
     Active Substance: CYCLOPHOSPHAMIDE
     Indication: ACUTE LYMPHOCYTIC LEUKAEMIA
     Dosage: GRAALL 2014 PROTOCOL (750 MG/[MM?] I.E. 1,400 MG)
     Dates: start: 20200406

REACTIONS (3)
  - Drug specific antibody present [Unknown]
  - Bone marrow failure [Unknown]
  - Hepatitis [Unknown]

NARRATIVE: CASE EVENT DATE: 20200413
